FAERS Safety Report 24710251 (Version 1)
Quarter: 2024Q4

REPORT INFORMATION
  Report Type: Spontaneous
  Country: CN (occurrence: CN)
  Receive Date: 20241209
  Receipt Date: 20241209
  Transmission Date: 20250114
  Serious: Yes (Hospitalization)
  Sender: BAXTER
  Company Number: None

PATIENT
  Age: 36 Year
  Sex: Female
  Weight: 45.5 kg

DRUGS (4)
  1. CYCLOPHOSPHAMIDE [Suspect]
     Active Substance: CYCLOPHOSPHAMIDE
     Indication: Breast cancer female
     Dosage: 0.4 G, ONE TIME IN ONE DAY, DILUTED WITH 60 ML OF 0.9% SODIUM CHLORIDE
     Route: 013
     Dates: start: 20241120, end: 20241120
  2. SODIUM CHLORIDE [Suspect]
     Active Substance: SODIUM CHLORIDE
     Indication: Medication dilution
     Dosage: 60 ML (0.9%), ONE TIME IN ONE DAY, USED TO DILUTE 0.4 G OF CYCLOPHOSPHAMIDE
     Route: 013
     Dates: start: 20241120, end: 20241120
  3. SODIUM CHLORIDE [Suspect]
     Active Substance: SODIUM CHLORIDE
     Dosage: 60 ML (0.9%), ONE TIME IN ONE DAY, USED TO DILUTE 60 MG OF DOCETAXEL
     Route: 013
     Dates: start: 20241120, end: 20241120
  4. DOCETAXEL [Suspect]
     Active Substance: DOCETAXEL
     Indication: Breast cancer female
     Dosage: 60 MG, ONE TIME IN ONE DAY, DILUTED WITH 60 ML OF 0.9% SODIUM CHLORIDE
     Route: 013
     Dates: start: 20241120, end: 20241120

REACTIONS (1)
  - White blood cell count decreased [Recovered/Resolved]

NARRATIVE: CASE EVENT DATE: 20241126
